FAERS Safety Report 13023452 (Version 1)
Quarter: 2016Q4

REPORT INFORMATION
  Report Type: Spontaneous
  Country: IT (occurrence: IT)
  Receive Date: 20161213
  Receipt Date: 20161213
  Transmission Date: 20170207
  Serious: Yes (Hospitalization, Other)
  Sender: FDA-Public Use
  Company Number: IT-MYLANLABS-2016M1054745

PATIENT

DRUGS (1)
  1. LAMOTRIGINE. [Suspect]
     Active Substance: LAMOTRIGINE
     Dosage: 200 MG; ACCIDENTAL INTAKE BY CHILD, 8 TABLETS FOUND MISSING
     Route: 065

REACTIONS (13)
  - Agitation [Recovered/Resolved]
  - Accidental exposure to product by child [Recovered/Resolved]
  - Toxicity to various agents [Recovered/Resolved]
  - Hyperphagia [Not Recovered/Not Resolved]
  - Sinus tachycardia [Recovered/Resolved]
  - Malaise [Recovered/Resolved]
  - Generalised tonic-clonic seizure [Recovered/Resolved]
  - Bundle branch block right [Recovered/Resolved]
  - Oculogyric crisis [Recovered/Resolved]
  - Accidental overdose [Recovered/Resolved]
  - Ataxia [Recovered/Resolved]
  - Dystonia [Recovered/Resolved]
  - Restlessness [Recovered/Resolved]
